FAERS Safety Report 20999050 (Version 2)
Quarter: 2022Q3

REPORT INFORMATION
  Report Type: Spontaneous
  Country: US (occurrence: US)
  Receive Date: 20220623
  Receipt Date: 20220718
  Transmission Date: 20221027
  Serious: No
  Sender: FDA-Public Use
  Company Number: US-BAYER-2022A084176

PATIENT
  Age: 59 Year
  Sex: Female

DRUGS (1)
  1. CLIMARA PRO [Suspect]
     Active Substance: ESTRADIOL\LEVONORGESTREL
     Dosage: UNK
     Route: 062
     Dates: start: 202203

REACTIONS (5)
  - Hot flush [None]
  - Headache [None]
  - Therapeutic product effect decreased [None]
  - Product quality issue [None]
  - Adverse event [None]

NARRATIVE: CASE EVENT DATE: 20220101
